FAERS Safety Report 6080827-3 (Version None)
Quarter: 2009Q1

REPORT INFORMATION
  Report Type: 
  Country: None (occurrence: None)
  Receive Date: 20090217
  Receipt Date: 20090206
  Transmission Date: 20090719
  Serious: Yes (Hospitalization)
  Sender: FDA-Public Use
  Company Number: FR-SANOFI-SYNTHELABO-A02200900317

PATIENT
  Age: 53 Year
  Sex: Male

DRUGS (10)
  1. TELFAST [Concomitant]
     Indication: HYPERSENSITIVITY
     Route: 048
  2. TERCIAN [Concomitant]
     Indication: PSYCHOTIC DISORDER
     Route: 048
  3. LEVOTHYROX [Concomitant]
     Indication: HYPOTHYROIDISM
     Route: 048
  4. KEPPRA [Concomitant]
     Indication: EPILEPSY
     Route: 048
  5. PHENOBARBITAL TAB [Concomitant]
     Indication: EPILEPSY
     Route: 048
  6. ATARAX [Concomitant]
     Indication: INSOMNIA
     Route: 048
  7. NEULEPTIL [Concomitant]
     Indication: PSYCHOTIC DISORDER
     Route: 048
  8. NULYTELY [Concomitant]
     Indication: CONSTIPATION
     Route: 048
  9. TEGRETOL [Suspect]
     Indication: ABNORMAL BEHAVIOUR
     Route: 048
     Dates: start: 20081107, end: 20090103
  10. XATRAL [Suspect]
     Indication: BENIGN PROSTATIC HYPERPLASIA
     Route: 048
     Dates: start: 20081104, end: 20090108

REACTIONS (1)
  - TOXIC SKIN ERUPTION [None]
